FAERS Safety Report 6997750-X (Version None)
Quarter: 2010Q3

REPORT INFORMATION
  Report Type: 
  Country: None (occurrence: None)
  Receive Date: 20100919
  Receipt Date: 20100910
  Transmission Date: 20110219
  Serious: Yes (Hospitalization)
  Sender: FDA-Public Use
  Company Number: PHHO2010IT13763

PATIENT
  Sex: Female
  Weight: 40 kg

DRUGS (2)
  1. CERTICAN [Suspect]
     Indication: RENAL TRANSPLANT
     Dosage: 0.75 MG, BID
     Route: 048
     Dates: start: 20100429
  2. NEORAL [Suspect]
     Indication: RENAL TRANSPLANT
     Dosage: 35 MG, BID
     Route: 048
     Dates: start: 20100429

REACTIONS (2)
  - LYMPHOCELE [None]
  - LYMPHOCELE MARSUPIALISATION [None]
